FAERS Safety Report 24090841 (Version 1)
Quarter: 2024Q3

REPORT INFORMATION
  Report Type: Report from Study
  Country: US (occurrence: US)
  Receive Date: 20240715
  Receipt Date: 20240715
  Transmission Date: 20241017
  Serious: Yes (Hospitalization)
  Sender: GILEAD
  Company Number: US-GILEAD-2024-0680475

PATIENT
  Age: 5 Year
  Sex: Male

DRUGS (1)
  1. AZTREONAM LYSINE [Suspect]
     Active Substance: AZTREONAM LYSINE
     Indication: Product used for unknown indication
     Dosage: 1 DOSAGE FORM, TID VIA ALTERA NEBULIZER, 28 DAYS ON AND 28 DAYS OFF
     Route: 055

REACTIONS (2)
  - Constipation [Unknown]
  - Off label use [Not Recovered/Not Resolved]
